FAERS Safety Report 11326616 (Version 3)
Quarter: 2015Q4

REPORT INFORMATION
  Report Type: Spontaneous
  Country: FR (occurrence: FR)
  Receive Date: 20150731
  Receipt Date: 20151005
  Transmission Date: 20160304
  Serious: Yes (Congenital Anomaly)
  Sender: FDA-Public Use
  Company Number: FR-BIOGENIDEC-2015BI105239

PATIENT
  Sex: Female

DRUGS (2)
  1. DUPHASTON [Concomitant]
     Active Substance: DYDROGESTERONE
  2. TECFIDERA [Suspect]
     Active Substance: DIMETHYL FUMARATE
     Indication: MATERNAL EXPOSURE TIMING UNSPECIFIED
     Route: 064
     Dates: start: 201412, end: 20150427

REACTIONS (4)
  - Hydrocephalus [Unknown]
  - Exomphalos [Unknown]
  - Foetal exposure during pregnancy [Recovered/Resolved]
  - Cerebellar dysplasia [Unknown]
